FAERS Safety Report 12298707 (Version 2)
Quarter: 2016Q3

REPORT INFORMATION
  Report Type: Spontaneous
  Country: US (occurrence: US)
  Receive Date: 20160425
  Receipt Date: 20160909
  Transmission Date: 20161109
  Serious: No
  Sender: FDA-Public Use
  Company Number: US-009507513-1604USA014050

PATIENT
  Age: 76 Year
  Sex: Male

DRUGS (2)
  1. SINEMET [Suspect]
     Active Substance: CARBIDOPA\LEVODOPA
     Dosage: UNK UNK, TID
     Route: 048
     Dates: start: 20160325
  2. NORTHERA [Suspect]
     Active Substance: DROXIDOPA
     Dosage: 100 MG, TID
     Route: 048
     Dates: start: 20160331, end: 20160404

REACTIONS (1)
  - Balance disorder [Recovered/Resolved]

NARRATIVE: CASE EVENT DATE: 20160401
